FAERS Safety Report 10085633 (Version 2)
Quarter: 2014Q2

REPORT INFORMATION
  Report Type: Spontaneous
  Country: AU (occurrence: AU)
  Receive Date: 20140418
  Receipt Date: 20140418
  Transmission Date: 20141212
  Serious: Yes (Other)
  Sender: FDA-Public Use
  Company Number: AU-JNJFOC-20130908825

PATIENT
  Age: 21 Year
  Sex: Female
  Weight: 75 kg

DRUGS (2)
  1. REMICADE [Suspect]
     Indication: CROHN^S DISEASE
     Dosage: START DATE: APPROXIMATELY ^18/12 PRIOR^
     Route: 042
     Dates: start: 2012
  2. ZOFRAN [Concomitant]
     Route: 065

REACTIONS (4)
  - Premature labour [Recovered/Resolved]
  - Gestational hypertension [Unknown]
  - Exposure during pregnancy [Recovered/Resolved]
  - Vomiting in pregnancy [Unknown]
